FAERS Safety Report 7801564-8 (Version None)
Quarter: 2011Q4

REPORT INFORMATION
  Report Type: 
  Country: None (occurrence: None)
  Receive Date: 20111006
  Receipt Date: 20111006
  Transmission Date: 20120403
  Serious: Yes (Hospitalization)
  Sender: FDA-Public Use
  Company Number: None

PATIENT
  Age: 66 Year
  Sex: Female
  Weight: 69.3 kg

DRUGS (6)
  1. ARICEPT [Concomitant]
  2. URSODIOL [Concomitant]
  3. PAROXETINE HCL [Concomitant]
  4. IBUPROFEN (ADVIL) [Suspect]
     Indication: BACK PAIN
     Dosage: PO CHRONIC
     Route: 048
  5. NAPROXEN [Suspect]
     Indication: BACK PAIN
     Dosage: 500 MG BID PO CHRONIC
     Route: 048
  6. LEVOXYL [Concomitant]

REACTIONS (3)
  - GASTRIC ULCER [None]
  - GASTROINTESTINAL HAEMORRHAGE [None]
  - HAEMOGLOBIN DECREASED [None]
